FAERS Safety Report 16241331 (Version 3)
Quarter: 2019Q3

REPORT INFORMATION
  Report Type: Spontaneous
  Country: GR (occurrence: GR)
  Receive Date: 20190426
  Receipt Date: 20190705
  Transmission Date: 20191004
  Serious: No
  Sender: FDA-Public Use
  Company Number: GR-AMGEN-GRCSP2019058092

PATIENT
  Age: 56 Year
  Sex: Male

DRUGS (10)
  1. CYMBALTA [Concomitant]
     Active Substance: DULOXETINE HYDROCHLORIDE
     Dosage: 60 MILLIGRAM, 1X/DAY (IN THE MORNING)
  2. CYMBALTA [Concomitant]
     Active Substance: DULOXETINE HYDROCHLORIDE
     Dosage: 60 MG, 1X/DAY (IN THE MORNING)
  3. NAPROSYN [Concomitant]
     Active Substance: NAPROXEN
     Dosage: 500 MILLIGRAM  X 2
  4. CYMBALTA [Concomitant]
     Active Substance: DULOXETINE HYDROCHLORIDE
     Dosage: 60 MG X2
  5. NAPROSYN [Concomitant]
     Active Substance: NAPROXEN
     Dosage: 500 MG, X 2
  6. MAXIDEX [Concomitant]
     Active Substance: DEXAMETHASONE
     Indication: IRIDOCYCLITIS
     Dosage: UNK
     Dates: start: 20190225
  7. ENBREL [Suspect]
     Active Substance: ETANERCEPT
     Indication: ANKYLOSING SPONDYLITIS
     Dosage: 50 MG, WEEKLY (FRIDAY MORNING)
     Route: 065
     Dates: start: 201809, end: 20190607
  8. XOZAL [Concomitant]
     Active Substance: LEVOCETIRIZINE
     Dosage: UNK, 1X/DAY (AFTERNOON)
  9. XOZAL [Concomitant]
     Active Substance: LEVOCETIRIZINE
     Dosage: UNK, 1X/DAY (AFTERNOON)
  10. CYMBALTA [Concomitant]
     Active Substance: DULOXETINE HYDROCHLORIDE
     Dosage: 60 MILLIGRAM X 2

REACTIONS (3)
  - Glycosylated haemoglobin increased [Unknown]
  - Blood glucose increased [Recovered/Resolved]
  - Peripheral swelling [Unknown]

NARRATIVE: CASE EVENT DATE: 2019
